FAERS Safety Report 10112238 (Version 1)
Quarter: 2014Q2

REPORT INFORMATION
  Report Type: Spontaneous
  Country: DE (occurrence: DE)
  Receive Date: 20140425
  Receipt Date: 20140425
  Transmission Date: 20141212
  Serious: Yes (Hospitalization)
  Sender: FDA-Public Use
  Company Number: GXKR2014DE001693

PATIENT
  Sex: 0

DRUGS (1)
  1. PACLITAXEL [Suspect]
     Indication: OVARIAN CANCER
     Dosage: 60 MG/M2, UNK
     Route: 042

REACTIONS (2)
  - Hypertensive crisis [Recovering/Resolving]
  - Flushing [Recovering/Resolving]
